FAERS Safety Report 15490408 (Version 1)
Quarter: 2018Q4

REPORT INFORMATION
  Report Type: Spontaneous
  Country: IT (occurrence: IT)
  Receive Date: 20181011
  Receipt Date: 20181011
  Transmission Date: 20190205
  Serious: Yes (Hospitalization)
  Sender: FDA-Public Use
  Company Number: IT-TEVA-2018-IT-963369

PATIENT
  Age: 71 Year
  Sex: Male

DRUGS (10)
  1. CALCITRIOL. [Concomitant]
     Active Substance: CALCITRIOL
     Route: 065
  2. ARANESP 60 MICROGRAMS SOLUTION FOR INJECTION IN PRE-FILLED SYRINGE [Concomitant]
  3. LASIX [Concomitant]
     Active Substance: FUROSEMIDE
     Route: 065
  4. DIDROGYL [Concomitant]
     Active Substance: CALCIFEDIOL
     Route: 065
  5. LANSOX [Concomitant]
     Active Substance: LANSOPRAZOLE
     Route: 065
  6. DEPAKIN [Concomitant]
     Active Substance: VALPROATE SODIUM
     Route: 065
  7. FERRO-GRAD [Concomitant]
     Active Substance: FERROUS SULFATE
     Route: 065
  8. CARDIOASPIRIN [Concomitant]
     Active Substance: ASPIRIN
     Route: 065
  9. DOXAZOSIN [Suspect]
     Active Substance: DOXAZOSIN\DOXAZOSIN MESYLATE
     Indication: HYPERTENSION
     Dosage: 4 MILLIGRAM DAILY;
     Route: 048
     Dates: start: 20180725, end: 20180816
  10. ALLOPURINOL. [Concomitant]
     Active Substance: ALLOPURINOL
     Route: 065

REACTIONS (1)
  - Syncope [Unknown]

NARRATIVE: CASE EVENT DATE: 20180816
